FAERS Safety Report 20223123 (Version 3)
Quarter: 2022Q4

REPORT INFORMATION
  Report Type: Spontaneous
  Country: CA (occurrence: CA)
  Receive Date: 20211223
  Receipt Date: 20221104
  Transmission Date: 20230112
  Serious: No
  Sender: FDA-Public Use
  Company Number: CA-PFIZER INC-202101671217

PATIENT
  Age: 36 Year
  Sex: Female

DRUGS (1)
  1. FRAGMIN [Suspect]
     Active Substance: DALTEPARIN SODIUM
     Indication: Thrombosis prophylaxis
     Dosage: UNK

REACTIONS (3)
  - Maternal exposure during pregnancy [Unknown]
  - Needle issue [Unknown]
  - Incorrect dose administered [Unknown]
